FAERS Safety Report 4705038-2 (Version None)
Quarter: 2005Q3

REPORT INFORMATION
  Report Type: 
  Country: None (occurrence: None)
  Receive Date: 20050701
  Receipt Date: 20050622
  Transmission Date: 20060218
  Serious: Yes (Hospitalization)
  Sender: FDA-Public Use
  Company Number: PHBS2005JP09106

PATIENT
  Age: 70 Year
  Sex: Female

DRUGS (1)
  1. VOLTAREN [Suspect]
     Indication: OSTEOARTHRITIS
     Dosage: 25 MG/DAY
     Route: 054
     Dates: start: 20000101

REACTIONS (3)
  - FIBROSIS [None]
  - GASTRIC ULCER [None]
  - PYLORIC STENOSIS [None]
